FAERS Safety Report 9445486 (Version 1)
Quarter: 2013Q3

REPORT INFORMATION
  Report Type: Report from Study
  Country: BR (occurrence: BR)
  Receive Date: 20130807
  Receipt Date: 20130807
  Transmission Date: 20140515
  Serious: Yes (Other)
  Sender: FDA-Public Use
  Company Number: PHHY2013BR083614

PATIENT
  Sex: Female
  Weight: 70 kg

DRUGS (11)
  1. ACLASTA [Suspect]
     Indication: OSTEOPOROSIS
     Dosage: 5 MG, UNK
     Route: 042
     Dates: start: 2013
  2. LOSARTAN [Suspect]
     Dosage: UNK UKN, UNK
  3. OMEPRAZOLE [Suspect]
     Dosage: UNK UKN, UNK
     Dates: start: 2013
  4. NATRILIX [Suspect]
     Dosage: UNK UKN, UNK
  5. LIPITOR [Suspect]
     Dosage: UNK UKN, UNK
  6. VASTAREL [Suspect]
     Dosage: UNK UKN, UNK
     Dates: start: 2005
  7. CELEBRA [Concomitant]
     Dosage: UNK UKN, UNK
     Dates: start: 2013
  8. LYRICA [Concomitant]
     Dosage: UNK UKN, UNK
     Dates: start: 2013
  9. CYMBALTA [Concomitant]
     Dosage: UNK UKN, UNK
     Dates: start: 2013
  10. URACET [Concomitant]
     Dosage: UNK UKN, UNK
     Dates: start: 2013
  11. SELOZOK [Concomitant]
     Dosage: UNK UKN, UNK
     Dates: start: 2005

REACTIONS (8)
  - Spondylitis [Not Recovered/Not Resolved]
  - Joint stiffness [Not Recovered/Not Resolved]
  - Mobility decreased [Not Recovered/Not Resolved]
  - Joint lock [Not Recovered/Not Resolved]
  - Rheumatic disorder [Not Recovered/Not Resolved]
  - Exostosis [Not Recovered/Not Resolved]
  - Fluid intake reduced [Unknown]
  - Urinary tract infection [Not Recovered/Not Resolved]
